FAERS Safety Report 5513501-X (Version None)
Quarter: 2007Q4

REPORT INFORMATION
  Report Type: 
  Country: None (occurrence: None)
  Receive Date: 20071112
  Receipt Date: 20071105
  Transmission Date: 20080405
  Serious: No
  Sender: FDA-Public Use
  Company Number: FR-PFIZER INC-2007093156

PATIENT
  Age: 19 Year
  Sex: Male

DRUGS (2)
  1. ATARAX [Suspect]
     Route: 048
  2. ABILIFY [Suspect]
     Indication: SCHIZOPHRENIA
     Dosage: DAILY DOSE:15MG

REACTIONS (1)
  - TACHYCARDIA [None]
